FAERS Safety Report 17848032 (Version 3)
Quarter: 2020Q2

REPORT INFORMATION
  Report Type: Spontaneous
  Country: US (occurrence: US)
  Receive Date: 20200601
  Receipt Date: 20200624
  Transmission Date: 20200714
  Serious: Yes (Other)
  Sender: FDA-Public Use
  Company Number: US-GILEAD-2020-0468530

PATIENT
  Age: 57 Year
  Sex: Male
  Weight: 91.4 kg

DRUGS (16)
  1. PANTOPRAZOLE [Concomitant]
     Active Substance: PANTOPRAZOLE
  2. PROPOFOL. [Concomitant]
     Active Substance: PROPOFOL
  3. INSULIN REGULAR HM [Concomitant]
     Active Substance: INSULIN NOS
  4. QUETIAPINE. [Concomitant]
     Active Substance: QUETIAPINE
  5. GABAPENTIN. [Concomitant]
     Active Substance: GABAPENTIN
  6. INSULIN GLARGINE [Concomitant]
     Active Substance: INSULIN GLARGINE
  7. NOREPINEPHRINE. [Concomitant]
     Active Substance: NOREPINEPHRINE
  8. REMDESIVIR. [Suspect]
     Active Substance: REMDESIVIR
     Indication: COVID-19
     Dosage: UNK
     Route: 065
     Dates: start: 20200509, end: 20200514
  9. ENOXAPARIN [Concomitant]
     Active Substance: ENOXAPARIN
  10. KETAMINE [Concomitant]
     Active Substance: KETAMINE
  11. POLYETHYLENE GLYCOL 3350. [Concomitant]
     Active Substance: POLYETHYLENE GLYCOL 3350
  12. DOCUSATE [Concomitant]
     Active Substance: DOCUSATE
  13. FENTANYL. [Concomitant]
     Active Substance: FENTANYL
  14. HYDROMORPHONE [Concomitant]
     Active Substance: HYDROMORPHONE
  15. LORAZEPAM. [Concomitant]
     Active Substance: LORAZEPAM
  16. OXYCODONE [Concomitant]
     Active Substance: OXYCODONE

REACTIONS (2)
  - Transaminases increased [Unknown]
  - Bilirubin conjugated increased [Recovered/Resolved]

NARRATIVE: CASE EVENT DATE: 20200514
